FAERS Safety Report 7331731-1 (Version None)
Quarter: 2011Q1

REPORT INFORMATION
  Report Type: 
  Country: None (occurrence: None)
  Receive Date: 20110304
  Receipt Date: 20110304
  Transmission Date: 20110831
  Serious: Yes (Death)
  Sender: FDA-Public Use
  Company Number: PHHO2008IL09795

PATIENT
  Sex: Male
  Weight: 69.5 kg

DRUGS (3)
  1. SANDOSTATIN LAR [Suspect]
     Indication: CARCINOID SYNDROME
     Dosage: 40
     Route: 048
     Dates: start: 20080501
  2. ZYPREXA [Concomitant]
     Indication: SCHIZOPHRENIA
     Dosage: 5
     Route: 048
     Dates: start: 20030202
  3. PLACEBO [Suspect]
     Indication: CARCINOID TUMOUR
     Dosage: PLACEBO
     Route: 048
     Dates: start: 20080501

REACTIONS (1)
  - ARRHYTHMIA [None]
